FAERS Safety Report 16952787 (Version 2)
Quarter: 2019Q4

REPORT INFORMATION
  Report Type: Report from Study
  Country: KR (occurrence: KR)
  Receive Date: 20191023
  Receipt Date: 20191118
  Transmission Date: 20200122
  Serious: Yes (Hospitalization)
  Sender: FDA-Public Use
  Company Number: KR-CELGENEUS-KOR-20191006158

PATIENT
  Age: 79 Year
  Sex: Male
  Weight: 67.8 kg

DRUGS (6)
  1. CRAVIT [Concomitant]
     Active Substance: LEVOFLOXACIN
     Indication: ANTIFUNGAL TREATMENT
     Dosage: 250 MILLIGRAM
     Route: 048
     Dates: start: 20190916
  2. ENASIDENIB [Suspect]
     Active Substance: ENASIDENIB
     Indication: ACUTE MYELOID LEUKAEMIA
     Route: 048
     Dates: start: 20190917, end: 20191014
  3. TARGIN [Concomitant]
     Active Substance: NALOXONE HYDROCHLORIDE\OXYCODONE HYDROCHLORIDE
     Indication: PAIN MANAGEMENT
     Dosage: 50 MILLIGRAM
     Route: 048
     Dates: start: 20190916
  4. ENASIDENIB [Suspect]
     Active Substance: ENASIDENIB
     Route: 048
     Dates: start: 20191017
  5. FINAZOL [Concomitant]
     Indication: ANTIFUNGAL TREATMENT
     Dosage: 200 MILLIGRAM
     Route: 048
     Dates: start: 20190916
  6. TAZOCIN [Concomitant]
     Active Substance: PIPERACILLIN SODIUM\TAZOBACTAM SODIUM
     Indication: ANTIBIOTIC THERAPY
     Dosage: 40.5 GRAM
     Route: 041
     Dates: start: 20190925

REACTIONS (2)
  - Asthenia [Not Recovered/Not Resolved]
  - Pyrexia [Recovered/Resolved]

NARRATIVE: CASE EVENT DATE: 20191014
